FAERS Safety Report 7754276-3 (Version None)
Quarter: 2011Q3

REPORT INFORMATION
  Report Type: 
  Country: None (occurrence: None)
  Receive Date: 20110915
  Receipt Date: 20110908
  Transmission Date: 20111222
  Serious: Yes (Hospitalization)
  Sender: FDA-Public Use
  Company Number: US-ELI_LILLY_AND_COMPANY-US201109002539

PATIENT
  Sex: Female

DRUGS (2)
  1. LANTUS [Concomitant]
     Dosage: UNK
  2. HUMALOG [Suspect]
     Indication: DIABETES MELLITUS
     Dosage: UNK UNK, PRN
     Dates: start: 20060801

REACTIONS (5)
  - BLISTER [None]
  - DRY SKIN [None]
  - ILL-DEFINED DISORDER [None]
  - HEART RATE INCREASED [None]
  - RASH PRURITIC [None]
